FAERS Safety Report 13649017 (Version 1)
Quarter: 2017Q2

REPORT INFORMATION
  Report Type: Spontaneous
  Country: US (occurrence: US)
  Receive Date: 20170613
  Receipt Date: 20170613
  Transmission Date: 20170830
  Serious: No
  Sender: FDA-Public Use
  Company Number: US-ELI_LILLY_AND_COMPANY-US201706004231

PATIENT
  Sex: Male

DRUGS (1)
  1. TRULICITY [Suspect]
     Active Substance: DULAGLUTIDE
     Indication: TYPE 2 DIABETES MELLITUS
     Dosage: 1.5 MG, UNKNOWN
     Route: 058

REACTIONS (5)
  - Injection site pain [Recovering/Resolving]
  - Eructation [Recovered/Resolved]
  - Incorrect dose administered [Recovering/Resolving]
  - Dyspepsia [Recovered/Resolved]
  - Dysgeusia [Recovered/Resolved]
